FAERS Safety Report 8460018-9 (Version None)
Quarter: 2012Q2

REPORT INFORMATION
  Report Type: 
  Country: None (occurrence: None)
  Receive Date: 20120622
  Receipt Date: 20120620
  Transmission Date: 20120825
  Serious: Yes (Other)
  Sender: FDA-Public Use
  Company Number: PHHY2012HR052783

PATIENT
  Age: 69 Year
  Sex: Female
  Weight: 64 kg

DRUGS (4)
  1. DICLOFENAC SODIUM [Suspect]
     Indication: BACK PAIN
     Dosage: 75 MG, QD
     Route: 048
     Dates: start: 20120502, end: 20120514
  2. IBANDRONATE SODIUM [Concomitant]
     Indication: OSTEOPOROSIS POSTMENOPAUSAL
     Dosage: 150 MG/1MONTH
     Route: 048
     Dates: start: 20080405
  3. LOSARTAN POTASSIUM [Concomitant]
     Indication: ESSENTIAL HYPERTENSION
     Dosage: 50 MG/DAY
     Route: 048
     Dates: start: 20120201
  4. NITROFURANTOIN [Concomitant]
     Indication: CYSTITIS
     Dosage: 50 MG, BID
     Route: 048
     Dates: start: 20120401

REACTIONS (3)
  - DRY THROAT [None]
  - VISION BLURRED [None]
  - AGEUSIA [None]
